FAERS Safety Report 12876842 (Version 3)
Quarter: 2016Q4

REPORT INFORMATION
  Report Type: Spontaneous
  Country: BR (occurrence: BR)
  Receive Date: 20161024
  Receipt Date: 20161222
  Transmission Date: 20170207
  Serious: Yes (Hospitalization, Other)
  Sender: FDA-Public Use
  Company Number: BR-SA-2016SA192395

PATIENT
  Sex: Female
  Weight: 65 kg

DRUGS (4)
  1. RIVOTRIL [Concomitant]
     Active Substance: CLONAZEPAM
     Indication: SLEEP DISORDER
     Route: 048
     Dates: start: 201608, end: 201608
  2. LANTUS [Suspect]
     Active Substance: INSULIN GLARGINE
     Indication: BLOOD GLUCOSE ABNORMAL
     Route: 065
     Dates: start: 2013
  3. CLIKSTAR [Concomitant]
     Active Substance: CLIKSTAR
  4. HUMALOG [Concomitant]
     Active Substance: INSULIN LISPRO
     Dosage: BETWEEN 5 TO 6 UI ON ALL MEALS
     Dates: start: 201405

REACTIONS (5)
  - Ketoacidosis [Not Recovered/Not Resolved]
  - Malaise [Unknown]
  - Blood glucose increased [Not Recovered/Not Resolved]
  - Coma [Recovered/Resolved]
  - Syncope [Unknown]

NARRATIVE: CASE EVENT DATE: 2016
